FAERS Safety Report 23077883 (Version 4)
Quarter: 2024Q2

REPORT INFORMATION
  Report Type: Spontaneous
  Country: AT (occurrence: AT)
  Receive Date: 20231018
  Receipt Date: 20240423
  Transmission Date: 20240716
  Serious: Yes (Other)
  Sender: FDA-Public Use
  Company Number: AT-002147023-NVSC2023AT223007

PATIENT
  Age: 49 Year
  Sex: Male

DRUGS (2)
  1. NILOTINIB [Suspect]
     Active Substance: NILOTINIB
     Indication: Product used for unknown indication
     Dosage: UNK
     Route: 065
  2. TASIGNA [Suspect]
     Active Substance: NILOTINIB
     Indication: Product used for unknown indication
     Dosage: UNK
     Route: 065

REACTIONS (4)
  - Cerebrovascular accident [Unknown]
  - Embolic stroke [Unknown]
  - Embolism [Recovered/Resolved]
  - Atrial thrombosis [Recovered/Resolved]

NARRATIVE: CASE EVENT DATE: 20230801
